FAERS Safety Report 12744089 (Version 3)
Quarter: 2016Q4

REPORT INFORMATION
  Report Type: Spontaneous
  Country: JP (occurrence: JP)
  Receive Date: 20160914
  Receipt Date: 20161013
  Transmission Date: 20170207
  Serious: Yes (Other)
  Sender: FDA-Public Use
  Company Number: JP-009507513-1609JPN005714

PATIENT
  Age: 38 Year
  Sex: Female
  Weight: 70 kg

DRUGS (7)
  1. ESLAX INTRAVENOUS 25MG/2.5ML [Concomitant]
     Active Substance: ROCURONIUM BROMIDE
     Indication: NEUROMUSCULAR BLOCKING THERAPY
     Dosage: 50 MG, DIVIDED DOSE, FREQUENCY UNKNOWN
     Route: 042
  2. PROPOFOL. [Concomitant]
     Active Substance: PROPOFOL
     Indication: MAINTENANCE OF ANAESTHESIA
     Dosage: 1.6-2.0 MICRO-G/ML, DAILY DOSE UNKNOWN
     Route: 051
  3. BRIDION [Suspect]
     Active Substance: SUGAMMADEX
     Indication: NEUROMUSCULAR BLOCKADE REVERSAL
     Dosage: 200 MG, DIVIDED DOSE FREQUENCY UNKNOWN
     Route: 042
  4. PROPOFOL. [Concomitant]
     Active Substance: PROPOFOL
     Indication: INDUCTION OF ANAESTHESIA
     Dosage: 5 MICRO-G/ML, DAILY DOSE UNKNOWN
     Route: 051
  5. REMIFENTANIL HYDROCHLORIDE [Concomitant]
     Active Substance: REMIFENTANIL HYDROCHLORIDE
     Indication: MAINTENANCE OF ANAESTHESIA
     Dosage: 0.2 MICROGRAM/KG/MIN, DAILY DOSE UNKNOWN
     Route: 051
  6. REMIFENTANIL HYDROCHLORIDE [Concomitant]
     Active Substance: REMIFENTANIL HYDROCHLORIDE
     Indication: INDUCTION OF ANAESTHESIA
     Dosage: 0.3 MICROGRAM/KG/MIN, DAILY DOSE UNKNOWN
     Route: 051
  7. FENTANYL. [Concomitant]
     Active Substance: FENTANYL
     Indication: ANALGESIC THERAPY
     Dosage: 0.1 MG, DIVIDED DOSE FREQUENCY UNKNOWN
     Route: 065

REACTIONS (1)
  - Laryngeal obstruction [Recovering/Resolving]
